FAERS Safety Report 16473805 (Version 1)
Quarter: 2019Q2

REPORT INFORMATION
  Report Type: Report from Study
  Country: CA (occurrence: CA)
  Receive Date: 20190625
  Receipt Date: 20190625
  Transmission Date: 20190711
  Serious: Yes (Other)
  Sender: FDA-Public Use
  Company Number: CA-ORION CORPORATION ORION PHARMA-TREX2019-1928

PATIENT
  Age: 59 Year
  Sex: Female

DRUGS (10)
  1. XOLAIR [Suspect]
     Active Substance: OMALIZUMAB
     Indication: CHRONIC SPONTANEOUS URTICARIA
     Route: 058
  2. METHOTREXATE (TRADE NAME UNKNOWN) [Suspect]
     Active Substance: METHOTREXATE
     Indication: PRODUCT USED FOR UNKNOWN INDICATION
     Route: 065
  3. SYNTHROID [Concomitant]
     Active Substance: LEVOTHYROXINE SODIUM
     Route: 065
  4. CLARITIN [Concomitant]
     Active Substance: LORATADINE
     Route: 065
  5. XOLAIR [Suspect]
     Active Substance: OMALIZUMAB
     Route: 058
  6. PREDNISONE. [Concomitant]
     Active Substance: PREDNISONE
     Route: 065
  7. REACTINE [Concomitant]
     Route: 065
  8. CICLOSPORIN [Suspect]
     Active Substance: CYCLOSPORINE
     Indication: CHRONIC SPONTANEOUS URTICARIA
     Route: 065
  9. ATARAX [Concomitant]
     Active Substance: HYDROXYZINE HYDROCHLORIDE
     Route: 065
  10. XOLAIR [Suspect]
     Active Substance: OMALIZUMAB
     Route: 058

REACTIONS (22)
  - Concomitant disease aggravated [Unknown]
  - Formication [Unknown]
  - Malaise [Unknown]
  - Palpitations [Unknown]
  - Temperature intolerance [Unknown]
  - Diarrhoea [Unknown]
  - Feeling hot [Unknown]
  - Photosensitivity reaction [Unknown]
  - Pyrexia [Unknown]
  - Dizziness [Unknown]
  - Pain [Unknown]
  - Pruritus [Unknown]
  - Urticaria [Unknown]
  - Product use in unapproved indication [Unknown]
  - Sepsis [Unknown]
  - Sinus headache [Unknown]
  - Off label use [Unknown]
  - Rash [Unknown]
  - Cellulitis [Unknown]
  - Chest discomfort [Unknown]
  - Erythema [Unknown]
  - Nasal oedema [Unknown]
